FAERS Safety Report 24880011 (Version 2)
Quarter: 2025Q1

REPORT INFORMATION
  Report Type: Spontaneous
  Country: US (occurrence: US)
  Receive Date: 20250123
  Receipt Date: 20250305
  Transmission Date: 20250408
  Serious: Yes (Other)
  Sender: PFIZER
  Company Number: US-PFIZER INC-PV202500008252

PATIENT
  Age: 82 Year
  Sex: Female

DRUGS (1)
  1. IBRANCE [Suspect]
     Active Substance: PALBOCICLIB
     Indication: Breast cancer
     Dosage: 75 MG, 1X/DAY

REACTIONS (3)
  - Breast cancer [Unknown]
  - Malignant neoplasm progression [Unknown]
  - Metastases to bone [Unknown]
